FAERS Safety Report 20108159 (Version 1)
Quarter: 2021Q4

REPORT INFORMATION
  Report Type: Spontaneous
  Country: US (occurrence: US)
  Receive Date: 20211124
  Receipt Date: 20211124
  Transmission Date: 20220303
  Serious: No
  Sender: FDA-Public Use
  Company Number: US-KERYX BIOPHARMACEUTICALS INC.-2021US007987

PATIENT
  Age: 59 Year
  Sex: Male

DRUGS (2)
  1. AURYXIA [Suspect]
     Active Substance: TETRAFERRIC TRICITRATE DECAHYDRATE
     Indication: Product used for unknown indication
     Dosage: 3 GRAM (TABLETS) WITH EACH MEAL, QD
     Route: 048
     Dates: start: 202103, end: 202103
  2. TUMS                               /00193601/ [Concomitant]

REACTIONS (1)
  - Spinal osteoarthritis [Unknown]
